FAERS Safety Report 6369465-2 (Version None)
Quarter: 2009Q3

REPORT INFORMATION
  Report Type: 
  Country: None (occurrence: None)
  Receive Date: 20090923
  Receipt Date: 20080410
  Transmission Date: 20100115
  Serious: Yes (Other)
  Sender: FDA-Public Use
  Company Number: US-ASTRAZENECA-2007UW08765

PATIENT
  Age: 656 Month
  Sex: Male
  Weight: 102.5 kg

DRUGS (8)
  1. SEROQUEL [Suspect]
     Indication: ANXIETY
     Dosage: 200MG- 300MG
     Route: 048
     Dates: start: 20051201, end: 20060701
  2. SEROQUEL [Suspect]
     Indication: DEPRESSION
     Dosage: 200MG- 300MG
     Route: 048
     Dates: start: 20051201, end: 20060701
  3. SEROQUEL [Suspect]
     Indication: BIPOLAR DISORDER
     Dosage: 200MG- 300MG
     Route: 048
     Dates: start: 20051201, end: 20060701
  4. SEROQUEL [Suspect]
     Dosage: 100 MG TABLETS, 1 TO 2 TABLETS AT BEDTIME
     Route: 048
     Dates: start: 20051201
  5. SEROQUEL [Suspect]
     Dosage: 100 MG TABLETS, 1 TO 2 TABLETS AT BEDTIME
     Route: 048
     Dates: start: 20051201
  6. SEROQUEL [Suspect]
     Dosage: 100 MG TABLETS, 1 TO 2 TABLETS AT BEDTIME
     Route: 048
     Dates: start: 20051201
  7. LISINOPRIL [Concomitant]
     Indication: HYPERTENSION
     Dates: start: 20030101
  8. VENLAFAXINE HCL [Concomitant]
     Indication: DEPRESSION
     Dates: start: 20060131

REACTIONS (3)
  - DIABETES MELLITUS INADEQUATE CONTROL [None]
  - DIABETIC NEUROPATHY [None]
  - TYPE 2 DIABETES MELLITUS [None]
